FAERS Safety Report 8807377 (Version 1)
Quarter: 2012Q4

REPORT INFORMATION
  Report Type: 
  Country: PE (occurrence: PE)
  Receive Date: 20120925
  Receipt Date: 20120925
  Transmission Date: 20130627
  Serious: Yes (Death, Hospitalization, Other)
  Sender: FDA-Public Use
  Company Number: PHHO2006PE00628

PATIENT
  Sex: Female

DRUGS (4)
  1. GLIVEC [Suspect]
     Indication: CHRONIC MYELOID LEUKAEMIA
     Dates: start: 20050601
  2. GLIVEC [Suspect]
     Dosage: 400 mg, QD
     Route: 048
     Dates: start: 20050603, end: 20050831
  3. SPIRONOLACTONE [Concomitant]
     Indication: ASCITES
  4. LACTULOSE [Concomitant]
     Indication: HEPATIC FAILURE

REACTIONS (13)
  - Multi-organ failure [Fatal]
  - Septic shock [Not Recovered/Not Resolved]
  - Azotaemia [Not Recovered/Not Resolved]
  - Hepatic encephalopathy [Not Recovered/Not Resolved]
  - Hepatic failure [Not Recovered/Not Resolved]
  - Pneumonia [Not Recovered/Not Resolved]
  - Chronic myeloid leukaemia [Not Recovered/Not Resolved]
  - Malignant neoplasm progression [Not Recovered/Not Resolved]
  - Gastrointestinal haemorrhage [Not Recovered/Not Resolved]
  - Ascites [Not Recovered/Not Resolved]
  - Loss of consciousness [Not Recovered/Not Resolved]
  - Pancytopenia [Unknown]
  - Neutropenia [Unknown]
